FAERS Safety Report 22055670 (Version 1)
Quarter: 2023Q1

REPORT INFORMATION
  Report Type: Spontaneous
  Country: CN (occurrence: CN)
  Receive Date: 20230302
  Receipt Date: 20230302
  Transmission Date: 20230417
  Serious: Yes (Hospitalization)
  Sender: FDA-Public Use
  Company Number: CN-PFIZER INC-PV202300039324

PATIENT
  Age: 93 Year
  Sex: Male

DRUGS (1)
  1. VFEND [Suspect]
     Active Substance: VORICONAZOLE
     Indication: Aspergillus infection
     Dosage: 0.2 G, 2X/DAY
     Route: 042
     Dates: start: 20230208, end: 20230216

REACTIONS (2)
  - Anuria [Unknown]
  - Renal failure [Unknown]

NARRATIVE: CASE EVENT DATE: 20230216
